FAERS Safety Report 6491314-2 (Version None)
Quarter: 2009Q4

REPORT INFORMATION
  Report Type: 
  Country: None (occurrence: None)
  Receive Date: 20091211
  Receipt Date: 20091204
  Transmission Date: 20100525
  Serious: Yes (Hospitalization)
  Sender: FDA-Public Use
  Company Number: US-ELI_LILLY_AND_COMPANY-US200912001310

PATIENT
  Sex: Female
  Weight: 78.458 kg

DRUGS (11)
  1. BYETTA [Suspect]
     Indication: TYPE 2 DIABETES MELLITUS
     Dosage: 10 UG, 2/D
     Route: 058
     Dates: start: 20050101
  2. BYETTA [Suspect]
  3. GLYBURIDE [Concomitant]
     Indication: TYPE 2 DIABETES MELLITUS
     Dosage: 2.5 MG, 2/D
     Route: 065
  4. LOVAZA [Concomitant]
     Dosage: UNK, 2/D
     Route: 065
  5. ENALAPRIL [Concomitant]
     Indication: CARDIAC DISORDER
     Dosage: 20 MG, 2/D
     Route: 065
  6. AMLODIPINE [Concomitant]
     Indication: BLOOD PRESSURE
     Dosage: 5 MG, DAILY (1/D)
     Route: 065
  7. TRICOR [Concomitant]
     Dosage: 145 MG, DAILY (1/D)
     Route: 065
  8. SPIRONOLACTONE [Concomitant]
     Dosage: 25 MG, DAILY (1/D)
     Route: 065
  9. VYTORIN [Concomitant]
     Dosage: 80 MG, EACH EVENING
     Route: 065
  10. WARFARIN SODIUM [Concomitant]
     Dosage: 5 MG, 4/W
     Route: 065
  11. WARFARIN SODIUM [Concomitant]
     Dosage: 2.5 MG, 2/W
     Route: 065

REACTIONS (7)
  - ARTERIAL OCCLUSIVE DISEASE [None]
  - BLOOD GLUCOSE DECREASED [None]
  - CHILLS [None]
  - DISORIENTATION [None]
  - FEELING HOT [None]
  - NERVOUSNESS [None]
  - SOMNOLENCE [None]
